FAERS Safety Report 5662329-9 (Version None)
Quarter: 2008Q1

REPORT INFORMATION
  Report Type: 
  Country: None (occurrence: None)
  Receive Date: 20080312
  Receipt Date: 20080229
  Transmission Date: 20080703
  Serious: Yes (Death)
  Sender: FDA-Public Use
  Company Number: US-PFIZER INC-2008019785

PATIENT
  Age: 22 Year
  Sex: Male

DRUGS (2)
  1. ALPRAZOLAM [Suspect]
  2. OXYCODONE HCL [Interacting]

REACTIONS (1)
  - DRUG INTERACTION [None]
